FAERS Safety Report 18316062 (Version 5)
Quarter: 2023Q1

REPORT INFORMATION
  Report Type: Other
  Country: CA (occurrence: CA)
  Receive Date: 20200927
  Receipt Date: 20230316
  Transmission Date: 20230417
  Serious: Yes (Death, Hospitalization, Other)
  Sender: FDA-Public Use
  Company Number: CA-CELLTRION INC.-2020CA027219

PATIENT

DRUGS (16)
  1. RITUXIMAB [Suspect]
     Active Substance: RITUXIMAB
     Indication: Granulomatosis with polyangiitis
     Dosage: 500 MILLIGRAM
     Route: 042
  2. RITUXIMAB [Suspect]
     Active Substance: RITUXIMAB
     Dosage: 750.0 MILLIGRAM, 1 EVERY 1 WEEKS
     Route: 042
  3. LEFLUNOMIDE [Suspect]
     Active Substance: LEFLUNOMIDE
     Indication: Product used for unknown indication
     Dosage: UNK
     Route: 065
  4. ATORVASTATIN [Concomitant]
     Active Substance: ATORVASTATIN
     Dosage: 20.0 MILLIGRAM, 1 EVERY 1 DAYS
     Route: 065
  5. AZATHIOPRINE [Concomitant]
     Active Substance: AZATHIOPRINE
     Dosage: 75.0 MILLIGRAM, 1 EVERY 1 DAYS
     Route: 065
  6. BENADRYL [Concomitant]
     Active Substance: DIPHENHYDRAMINE HYDROCHLORIDE
     Indication: Premedication
     Dosage: 50 MG
     Route: 048
  7. HYDROCHLOROTHIAZIDE [Concomitant]
     Active Substance: HYDROCHLOROTHIAZIDE
     Dosage: 12.5 MILLIGRAM, 1 EVERY 1 DAYS
     Route: 065
  8. METOPROLOL [Concomitant]
     Active Substance: METOPROLOL
     Dosage: 25.0 MILLIGRAM, 2 EVERY 1 DAYS
     Route: 065
  9. MICARDIS [Concomitant]
     Active Substance: TELMISARTAN
     Dosage: 80.0 MILLIGRAM
     Route: 065
  10. MICARDIS [Concomitant]
     Active Substance: TELMISARTAN
     Dosage: 40.0 MILLIGRAM
     Route: 065
  11. FERRIC POLYSACCHARIDE COMPLEX [Concomitant]
     Active Substance: FERRIC POLYSACCHARIDE COMPLEX
     Dosage: 150.0 MILLIGRAM, 1 EVERY 1 DAYS
     Route: 065
  12. RABEPRAZOLE [Concomitant]
     Active Substance: RABEPRAZOLE
     Dosage: 20.0 MILLIGRAM, 1 EVERY 1 DAYS
     Route: 065
  13. SOLU-MEDROL [Concomitant]
     Active Substance: METHYLPREDNISOLONE SODIUM SUCCINATE
     Indication: Premedication
     Dosage: 100.0 MILLIGRAM
     Route: 042
  14. SULFAMETHOXAZOLE\TRIMETHOPRIM [Concomitant]
     Active Substance: SULFAMETHOXAZOLE\TRIMETHOPRIM
     Dosage: UNK, 1 EVERY 1 DAY
     Route: 065
  15. TELMISARTAN [Concomitant]
     Active Substance: TELMISARTAN
     Dosage: 40.0 MILLIGRAM, 1 EVERY 1 DAYS
     Route: 065
  16. TYLENOL [Concomitant]
     Active Substance: ACETAMINOPHEN
     Indication: Premedication
     Dosage: 650.0 MILLIGRAM
     Route: 048

REACTIONS (45)
  - Areflexia [Fatal]
  - Arthralgia [Fatal]
  - Blindness unilateral [Fatal]
  - Blood creatinine increased [Fatal]
  - Blood pressure increased [Fatal]
  - Blood pressure systolic abnormal [Fatal]
  - Blood pressure systolic increased [Fatal]
  - COVID-19 [Fatal]
  - COVID-19 pneumonia [Fatal]
  - Cataract [Fatal]
  - Cerumen impaction [Fatal]
  - Chronic kidney disease [Fatal]
  - Cold sweat [Fatal]
  - Cough [Fatal]
  - Cystitis [Fatal]
  - Decreased appetite [Fatal]
  - Eye disorder [Fatal]
  - Glaucoma [Fatal]
  - Granulomatosis with polyangiitis [Fatal]
  - Haemoglobin decreased [Fatal]
  - Heart rate decreased [Fatal]
  - Hyperhidrosis [Fatal]
  - Hypoalbuminaemia [Fatal]
  - Hypotension [Fatal]
  - Illness [Fatal]
  - Inflammatory marker increased [Fatal]
  - Influenza [Fatal]
  - Iron deficiency [Fatal]
  - Lethargy [Fatal]
  - Limb discomfort [Fatal]
  - Nasopharyngitis [Fatal]
  - Neuropathy peripheral [Fatal]
  - Oesophageal candidiasis [Fatal]
  - Onycholysis [Fatal]
  - Pain in extremity [Fatal]
  - Platelet count increased [Fatal]
  - Protein total increased [Fatal]
  - Pyrexia [Fatal]
  - Renal disorder [Fatal]
  - Renal impairment [Fatal]
  - Renal injury [Fatal]
  - Retinal detachment [Fatal]
  - Small fibre neuropathy [Fatal]
  - Drug ineffective [Fatal]
  - Off label use [Fatal]
